FAERS Safety Report 12116502 (Version 1)
Quarter: 2016Q1

REPORT INFORMATION
  Report Type: Other
  Country: GB (occurrence: GB)
  Receive Date: 20160225
  Receipt Date: 20160225
  Transmission Date: 20160526
  Serious: Yes (Other)
  Sender: FDA-Public Use
  Company Number: GB-MYLANLABS-2016M1006899

PATIENT

DRUGS (2)
  1. GALANTAMINE. [Suspect]
     Active Substance: GALANTAMINE
     Dosage: UNK
     Route: 048
     Dates: start: 20150811
  2. MELATONIN [Interacting]
     Active Substance: MELATONIN
     Dosage: 2 MG, QD (AT NIGHT)
     Route: 048
     Dates: start: 20160127, end: 20160203

REACTIONS (2)
  - Vasculitic rash [Not Recovered/Not Resolved]
  - Drug interaction [Unknown]

NARRATIVE: CASE EVENT DATE: 20160201
